FAERS Safety Report 8557372-6 (Version None)
Quarter: 2012Q3

REPORT INFORMATION
  Report Type: 
  Country: None (occurrence: None)
  Receive Date: 20120801
  Receipt Date: 20120726
  Transmission Date: 20120928
  Serious: Yes (Other)
  Sender: FDA-Public Use
  Company Number: ES-MSD-1207ESP012992

PATIENT

DRUGS (3)
  1. TELAPREVIR [Suspect]
     Indication: HEPATITIS C
     Dosage: 2 COMPRIMIDOS/8 HORAS
     Route: 065
     Dates: start: 20120601, end: 20120716
  2. RIBAVIRIN [Suspect]
     Indication: HEPATITIS C
     Route: 065
     Dates: start: 20120601
  3. PEG-INTRON [Suspect]
     Indication: HEPATITIS C
     Route: 065
     Dates: start: 20120601

REACTIONS (1)
  - RASH [None]
